FAERS Safety Report 5489178-9 (Version None)
Quarter: 2007Q4

REPORT INFORMATION
  Report Type: 
  Country: None (occurrence: None)
  Receive Date: 20071018
  Receipt Date: 20061019
  Transmission Date: 20080405
  Serious: No
  Sender: FDA-Public Use
  Company Number: US-BRISTOL-MYERS SQUIBB COMPANY-13547039

PATIENT
  Age: 65 Year
  Sex: Female
  Weight: 75 kg

DRUGS (2)
  1. MEGACE [Suspect]
     Indication: BREAST CANCER
     Route: 048
  2. EYE DROPS [Concomitant]

REACTIONS (1)
  - HOT FLUSH [None]
